FAERS Safety Report 19007291 (Version 1)
Quarter: 2021Q1

REPORT INFORMATION
  Report Type: Spontaneous
  Country: US (occurrence: US)
  Receive Date: 20210315
  Receipt Date: 20210315
  Transmission Date: 20210420
  Serious: No
  Sender: FDA-Public Use
  Company Number: None

PATIENT
  Age: 35 Year
  Sex: Female
  Weight: 60.75 kg

DRUGS (3)
  1. VITAMIN D [Concomitant]
     Active Substance: VITAMIN D NOS
  2. EUTHYROX [Suspect]
     Active Substance: LEVOTHYROXINE SODIUM
     Indication: HYPOTHYROIDISM
     Dosage: ?          OTHER STRENGTH:MCG;QUANTITY:30 TABLET(S);?
     Route: 048
  3. LEVOTHYROXINE. [Concomitant]
     Active Substance: LEVOTHYROXINE

REACTIONS (13)
  - Product substitution issue [None]
  - Arthralgia [None]
  - Myalgia [None]
  - Abdominal discomfort [None]
  - Blood thyroid stimulating hormone increased [None]
  - Affective disorder [None]
  - Alopecia [None]
  - Lethargy [None]
  - Headache [None]
  - Feeling abnormal [None]
  - Weight increased [None]
  - Appetite disorder [None]
  - Drug ineffective [None]

NARRATIVE: CASE EVENT DATE: 20210104
